FAERS Safety Report 14354990 (Version 3)
Quarter: 2018Q1

REPORT INFORMATION
  Report Type: Report from Study
  Country: CR (occurrence: CR)
  Receive Date: 20180105
  Receipt Date: 20180221
  Transmission Date: 20180509
  Serious: Yes (Other)
  Sender: FDA-Public Use
  Company Number: PHHY2017CR196812

PATIENT
  Sex: Female
  Weight: 89 kg

DRUGS (4)
  1. DIOVAN [Suspect]
     Active Substance: VALSARTAN
     Indication: HYPERTENSION
     Dosage: 80 MG, UNK
     Route: 048
  2. GLUCOSAMIN [Concomitant]
     Indication: PRODUCT USED FOR UNKNOWN INDICATION
     Route: 065
  3. MAGNESIUM CHLORIDE. [Concomitant]
     Active Substance: MAGNESIUM CHLORIDE
     Indication: PRODUCT USED FOR UNKNOWN INDICATION
     Dosage: UNK UNK, PRN
     Route: 065
  4. DIOVAN [Suspect]
     Active Substance: VALSARTAN
     Dosage: 160 MG, UNK
     Route: 048

REACTIONS (15)
  - Blood pressure increased [Unknown]
  - Palpitations [Unknown]
  - Headache [Unknown]
  - Stress [Unknown]
  - Dry skin [Unknown]
  - Blood pressure decreased [Unknown]
  - Drug ineffective [Unknown]
  - Loss of consciousness [Unknown]
  - Fluid retention [Unknown]
  - Discomfort [Unknown]
  - Blood potassium decreased [Unknown]
  - Tachycardia [Unknown]
  - Skin discolouration [Unknown]
  - Left ventricular dysfunction [Unknown]
  - Blood pressure inadequately controlled [Unknown]
